FAERS Safety Report 10952247 (Version 1)
Quarter: 2015Q1

REPORT INFORMATION
  Report Type: Spontaneous
  Country: US (occurrence: None)
  Receive Date: 20150324
  Receipt Date: 20150324
  Transmission Date: 20150721
  Serious: No
  Sender: FDA-Public Use
  Company Number: None

PATIENT
  Age: 42 Year
  Sex: Female

DRUGS (2)
  1. ZYRTEC [Concomitant]
     Active Substance: CETIRIZINE HYDROCHLORIDE
  2. NASONEX [Suspect]
     Active Substance: MOMETASONE FUROATE
     Indication: SEASONAL ALLERGY
     Dosage: 2 SPRAYS/NOSTRIL
     Route: 055
     Dates: start: 20150322, end: 20150322

REACTIONS (6)
  - Anxiety [None]
  - Insomnia [None]
  - Peripheral swelling [None]
  - Heart rate increased [None]
  - Pruritus [None]
  - Palpitations [None]

NARRATIVE: CASE EVENT DATE: 20150322
